FAERS Safety Report 13007183 (Version 1)
Quarter: 2016Q4

REPORT INFORMATION
  Report Type: Spontaneous
  Country: FR (occurrence: FR)
  Receive Date: 20161207
  Receipt Date: 20161207
  Transmission Date: 20170207
  Serious: Yes (Other)
  Sender: FDA-Public Use
  Company Number: FR-IPSEN BIOPHARMACEUTICALS, INC.-2016-10064

PATIENT
  Sex: Male

DRUGS (1)
  1. DYSPORT [Suspect]
     Active Substance: ABOBOTULINUMTOXINA
     Indication: PARAPARESIS
     Dosage: 1500 UNITS
     Route: 030
     Dates: start: 20160825, end: 20160825

REACTIONS (9)
  - Asthenia [Recovering/Resolving]
  - Fall [Recovered/Resolved]
  - Dysphagia [Recovered/Resolved]
  - Asthenia [Recovering/Resolving]
  - Neuromuscular toxicity [Unknown]
  - Condition aggravated [Recovered/Resolved]
  - Muscular weakness [Recovering/Resolving]
  - Muscular weakness [Recovered/Resolved]
  - Salivary hypersecretion [Recovered/Resolved]

NARRATIVE: CASE EVENT DATE: 2016
